FAERS Safety Report 10212733 (Version 2)
Quarter: 2014Q2

REPORT INFORMATION
  Report Type: Spontaneous
  Country: US (occurrence: US)
  Receive Date: 20140602
  Receipt Date: 20140602
  Transmission Date: 20141212
  Serious: No
  Sender: FDA-Public Use
  Company Number: US-AMGEN-USASP2014036486

PATIENT
  Age: 74 Year
  Sex: Female

DRUGS (3)
  1. ENBREL [Suspect]
     Indication: RHEUMATOID ARTHRITIS
     Dosage: 50 MG, QWK
     Route: 065
     Dates: start: 20140429
  2. ENBREL [Suspect]
  3. ENBREL [Suspect]

REACTIONS (4)
  - Confusional state [Recovered/Resolved]
  - Incorrect route of drug administration [Recovered/Resolved]
  - Sinusitis [Not Recovered/Not Resolved]
  - Oral candidiasis [Not Recovered/Not Resolved]
